FAERS Safety Report 7751572-0 (Version None)
Quarter: 2011Q3

REPORT INFORMATION
  Report Type: 
  Country: None (occurrence: None)
  Receive Date: 20110914
  Receipt Date: 20110908
  Transmission Date: 20111222
  Serious: Yes (Other)
  Sender: FDA-Public Use
  Company Number: PHEH2011US03871

PATIENT
  Sex: Male
  Weight: 62.585 kg

DRUGS (1)
  1. AFINITOR [Suspect]
     Indication: METASTASES TO LIVER
     Dosage: 10 MG, QD
     Route: 048
     Dates: start: 20110620

REACTIONS (11)
  - MOUTH ULCERATION [None]
  - PSEUDOCYST [None]
  - DISCOMFORT [None]
  - PANCREATIC DUCT DILATATION [None]
  - DIARRHOEA [None]
  - ABDOMINAL PAIN [None]
  - CHOLELITHIASIS [None]
  - TONGUE ULCERATION [None]
  - PANCREATIC NEOPLASM [None]
  - WEIGHT DECREASED [None]
  - RASH PUSTULAR [None]
